FAERS Safety Report 9153500 (Version 1)
Quarter: 2013Q1

REPORT INFORMATION
  Report Type: Spontaneous
  Country: JP (occurrence: None)
  Receive Date: 20130204
  Receipt Date: 20130204
  Transmission Date: 20140127
  Serious: Yes (Hospitalization)
  Sender: FDA-Public Use
  Company Number: AXC-2013-000027

PATIENT
  Age: 30 Year
  Sex: Male

DRUGS (2)
  1. URSODEOXYCHOLIC ACID [Suspect]
     Indication: HEPATITIS A
  2. HERBALS [Suspect]

REACTIONS (2)
  - Drug-induced liver injury [None]
  - Drug eruption [None]
